FAERS Safety Report 8041610-2 (Version None)
Quarter: 2012Q1

REPORT INFORMATION
  Report Type: 
  Country: None (occurrence: None)
  Receive Date: 20120112
  Receipt Date: 20120105
  Transmission Date: 20120608
  Serious: Yes (Hospitalization)
  Sender: FDA-Public Use
  Company Number: US-BAYER-2011-045456

PATIENT
  Age: 23 Year
  Sex: Female
  Weight: 91 kg

DRUGS (18)
  1. TEMAZEPAM [Concomitant]
     Dosage: 15 MG, HS
     Route: 048
     Dates: start: 20091222
  2. UNCODEABLE ^UNCLASSIFIABLE^ [Concomitant]
     Dosage: UNK
     Route: 048
     Dates: start: 20100122
  3. PERCOCET [Concomitant]
     Dosage: 5 MG, PRN
     Route: 048
  4. OXYCONTIN [Concomitant]
     Dosage: UNK UNK, 5ID
     Route: 048
     Dates: start: 20100208
  5. MULTI-VITAMIN [Concomitant]
     Dosage: UNK UNK, QD
     Route: 048
  6. ZOLPIDEM [Concomitant]
     Dosage: 10 MG, HS
     Route: 048
     Dates: start: 20091221
  7. IBUPROFEN [Concomitant]
     Dosage: UNK
     Route: 048
     Dates: start: 20100221
  8. CYMBALTA [Concomitant]
     Dosage: 60 MG, QD
     Route: 048
  9. SEROQUEL [Concomitant]
     Dosage: 50 MG, UNK
     Route: 048
  10. KETOPROFEN [Concomitant]
     Indication: PAIN
     Dosage: 75 MG, PRN
     Route: 048
     Dates: start: 20091111
  11. BENADRYL [Concomitant]
     Dosage: UNK
     Route: 048
     Dates: start: 20100201
  12. ATIVAN [Concomitant]
     Indication: ANXIETY
     Dosage: 2 MG, PRN
     Route: 048
  13. PENICILLIN VK [Concomitant]
     Dosage: 500 MG, QID
     Route: 048
     Dates: start: 20091120
  14. VALIUM [Concomitant]
     Indication: NUCLEAR MAGNETIC RESONANCE IMAGING NORMAL
     Dosage: 10 MG, UNK
     Route: 048
     Dates: start: 20100122
  15. YAZ [Suspect]
     Indication: PRODUCT USED FOR UNKNOWN INDICATION
     Dosage: UNK
     Route: 048
     Dates: start: 20090501, end: 20100201
  16. ZANAFLEX [Concomitant]
     Dosage: 4 MG, QD
     Route: 048
  17. INVEGA [Concomitant]
     Dosage: 6 MG, QD
     Route: 048
     Dates: start: 20091111
  18. ZYPREXA [Concomitant]
     Dosage: 30 MG, HS
     Route: 048

REACTIONS (7)
  - INJURY [None]
  - MENTAL DISORDER [None]
  - ANHEDONIA [None]
  - PULMONARY EMBOLISM [None]
  - PAIN [None]
  - FEAR [None]
  - ANXIETY [None]
